FAERS Safety Report 9723647 (Version 2)
Quarter: 2014Q1

REPORT INFORMATION
  Report Type: Spontaneous
  Country: US (occurrence: US)
  Receive Date: 20131202
  Receipt Date: 20140116
  Transmission Date: 20141002
  Serious: Yes (Other)
  Sender: FDA-Public Use
  Company Number: US-TEVA-447635USA

PATIENT
  Age: 37 Year
  Sex: Female
  Weight: 52.21 kg

DRUGS (5)
  1. PARAGARD 380A [Suspect]
     Indication: CONTRACEPTION
     Route: 015
     Dates: start: 20090512, end: 20131125
  2. LEVOTHYROXINE [Concomitant]
     Indication: HYPOTHYROIDISM
  3. VALTREX [Concomitant]
  4. AMBIEN [Concomitant]
  5. IRON [Concomitant]

REACTIONS (3)
  - Embedded device [Recovered/Resolved]
  - Vaginal haemorrhage [Unknown]
  - Abdominal pain lower [Unknown]
